FAERS Safety Report 11079221 (Version 1)
Quarter: 2015Q2

REPORT INFORMATION
  Report Type: Report from Study
  Country: AU (occurrence: None)
  Receive Date: 20150428
  Receipt Date: 20150428
  Transmission Date: 20150821
  Serious: Yes (Other)
  Sender: FDA-Public Use
  Company Number: KAD201504-000962

PATIENT
  Age: 54 Year
  Sex: Male
  Weight: 72 kg

DRUGS (5)
  1. ABT-333 250 MG (DASABUVIR) [Suspect]
     Active Substance: DASABUVIR
     Indication: HEPATITIS C
     Dosage: TABLET, 250 MG, 2 IN 1 D (500 MG), ORAL
     Route: 048
     Dates: start: 20150409
  2. EPOETIN ALFA (EPOETIN ALFA) (EPOETIN ALFA) [Concomitant]
  3. RIBAVIRIN 200 MG TABLETS (RIBAVIRIN) [Suspect]
     Active Substance: RIBAVIRIN
     Indication: HEPATITIS C
     Dosage: 200 MG; 1 IN 2 DAYS, ORAL
     Route: 048
     Dates: start: 20150409, end: 20150411
  4. ABT-450/RITONAVIR/ABT-267 (OMBITASVIR, PARITAPREVIR, RITONAVIR) [Suspect]
     Active Substance: OMBITASVIR\PARITAPREVIR\RITONAVIR
     Indication: HEPATITIS C
     Dosage: TABLET, 75/50/12.5 MG (2 TABLET; 1 IN 1 DAY), ORAL
     Route: 048
  5. SEROQUEL (QUETIAPINE FUMARATE) (QUETIAPINE FUMARATE) [Concomitant]

REACTIONS (1)
  - Renal impairment [None]

NARRATIVE: CASE EVENT DATE: 20150411
